FAERS Safety Report 6470593-1 (Version None)
Quarter: 2009Q4

REPORT INFORMATION
  Report Type: 
  Country: None (occurrence: None)
  Receive Date: 20091203
  Receipt Date: 20081128
  Transmission Date: 20100525
  Serious: No
  Sender: FDA-Public Use
  Company Number: US-ABBOTT-08P-163-0484866-00

PATIENT
  Sex: Female
  Weight: 63.56 kg

DRUGS (1)
  1. MERIDIA [Suspect]
     Indication: WEIGHT DECREASED
     Dates: start: 20081003

REACTIONS (3)
  - DRUG INEFFECTIVE [None]
  - LACK OF SATIETY [None]
  - WEIGHT INCREASED [None]
